FAERS Safety Report 18601438 (Version 1)
Quarter: 2020Q4

REPORT INFORMATION
  Report Type: Report from Study
  Country: IT (occurrence: IT)
  Receive Date: 20201210
  Receipt Date: 20201210
  Transmission Date: 20210114
  Serious: Yes (Hospitalization)
  Sender: FDA-Public Use
  Company Number: IT-TEVA-2020-IT-1856237

PATIENT
  Age: 79 Year
  Sex: Male

DRUGS (13)
  1. OMEPRAZOLE. [Concomitant]
     Active Substance: OMEPRAZOLE
  2. FINASTERIDE. [Concomitant]
     Active Substance: FINASTERIDE
  3. LASIX [Concomitant]
     Active Substance: FUROSEMIDE
  4. CLOPIDOGREL HYDROGEN SULFATE [Suspect]
     Active Substance: CLOPIDOGREL BISULFATE
     Indication: CARDIOVASCULAR EVENT PROPHYLAXIS
     Dates: start: 20200101, end: 20201007
  5. ATORVASTATIN CALCIUM TRIHYDRATE [Concomitant]
     Active Substance: ATORVASTATIN CALCIUM
  6. DROPAXIN [Concomitant]
  7. DAPTOMYCIN. [Concomitant]
     Active Substance: DAPTOMYCIN
  8. ALLOPURINOL. [Concomitant]
     Active Substance: ALLOPURINOL
  9. FOLINA [Concomitant]
  10. KANRENOL  25 COMPRESSE [Concomitant]
  11. CARDIOASPIRIN 100 MG COMPRESSE GASTRORESISTENTI [Suspect]
     Active Substance: ASPIRIN
     Indication: CARDIOVASCULAR EVENT PROPHYLAXIS
     Dates: start: 20200101, end: 20201007
  12. ENOXAPARIN SODIUM. [Suspect]
     Active Substance: ENOXAPARIN SODIUM
     Indication: CARDIOVASCULAR EVENT PROPHYLAXIS
     Dosage: 2000 KU
     Route: 058
     Dates: start: 20200101, end: 20201007
  13. DEURSIL [Concomitant]
     Active Substance: URSODIOL

REACTIONS (1)
  - Anaemia [Unknown]

NARRATIVE: CASE EVENT DATE: 20201007
